FAERS Safety Report 15720784 (Version 1)
Quarter: 2018Q4

REPORT INFORMATION
  Report Type: Report from Study
  Country: US (occurrence: US)
  Receive Date: 20181213
  Receipt Date: 20181213
  Transmission Date: 20190205
  Serious: No
  Sender: FDA-Public Use
  Company Number: PHEH2018US052255

PATIENT
  Sex: Female

DRUGS (1)
  1. ILARIS [Suspect]
     Active Substance: CANAKINUMAB
     Route: 065

REACTIONS (5)
  - Temperature intolerance [Unknown]
  - Hunger [Unknown]
  - Tanning [Unknown]
  - Swelling face [Unknown]
  - Fatigue [Unknown]
